FAERS Safety Report 4328443-5 (Version None)
Quarter: 2004Q1

REPORT INFORMATION
  Report Type: 
  Country: None (occurrence: None)
  Receive Date: 20040331
  Receipt Date: 20040326
  Transmission Date: 20041129
  Serious: Yes (Other)
  Sender: FDA-Public Use
  Company Number: PHEH2004US03529

PATIENT
  Age: 83 Year
  Sex: Female

DRUGS (2)
  1. EXELON [Suspect]
     Dosage: 4.5 MG, UNK
     Route: 048
     Dates: start: 20030512
  2. REMERON [Suspect]
     Dosage: 15 MG, QD
     Dates: start: 20030512

REACTIONS (5)
  - AGITATION [None]
  - DEPRESSION [None]
  - DRUG INTERACTION [None]
  - IMPULSE-CONTROL DISORDER [None]
  - WEIGHT INCREASED [None]
